FAERS Safety Report 18668885 (Version 1)
Quarter: 2020Q4

REPORT INFORMATION
  Report Type: Spontaneous
  Country: US (occurrence: US)
  Receive Date: 20201228
  Receipt Date: 20201228
  Transmission Date: 20210114
  Serious: No
  Sender: FDA-Public Use
  Company Number: US-HORIZON-2020HZN02778

PATIENT
  Age: 79 Year
  Sex: Female
  Weight: 55.79 kg

DRUGS (10)
  1. TEPEZZA [Suspect]
     Active Substance: TEPROTUMUMAB-TRBW
     Indication: BASEDOW^S DISEASE
  2. MORPHINE SULFATE. [Concomitant]
     Active Substance: MORPHINE SULFATE
  3. LOSARTAN-HYDROCHLOROTHIAZIDE [Concomitant]
     Active Substance: HYDROCHLOROTHIAZIDE\LOSARTAN
  4. LEVOTHYROXINE. [Concomitant]
     Active Substance: LEVOTHYROXINE
  5. VITAMIN C [Concomitant]
     Active Substance: ASCORBIC ACID
  6. VITAMIN D3 [Concomitant]
     Active Substance: CHOLECALCIFEROL
  7. XANAX [Concomitant]
     Active Substance: ALPRAZOLAM
  8. AMLODIPINE AND ATORVASTATIN [Concomitant]
     Active Substance: AMLODIPINE BESYLATE\ATORVASTATIN CALCIUM
  9. PRAVASTATIN. [Concomitant]
     Active Substance: PRAVASTATIN
  10. NORCO [Concomitant]
     Active Substance: ACETAMINOPHEN\HYDROCODONE BITARTRATE
     Dosage: 7.5-325 MG

REACTIONS (1)
  - Taste disorder [Unknown]
